FAERS Safety Report 6925865-0 (Version None)
Quarter: 2010Q3

REPORT INFORMATION
  Report Type: 
  Country: None (occurrence: None)
  Receive Date: 20100810
  Receipt Date: 20100802
  Transmission Date: 20110219
  Serious: Yes (Death, Other)
  Sender: FDA-Public Use
  Company Number: 2010JP004502

PATIENT
  Age: 33 Year
  Sex: Male

DRUGS (8)
  1. PROGRAF [Suspect]
     Indication: ALLOGENIC BONE MARROW TRANSPLANTATION THERAPY
  2. CYTARABINE [Concomitant]
  3. METHOTREXATE [Concomitant]
  4. PREDNISOLONE [Concomitant]
  5. CLARITHROMYCIN [Concomitant]
  6. ETHAMBUTOL (ETHAMBUTOL) [Concomitant]
  7. RIFAMPCIN (RIFAMPCIN) [Concomitant]
  8. GATIFLOXACIN [Concomitant]

REACTIONS (5)
  - ACUTE GRAFT VERSUS HOST DISEASE IN SKIN [None]
  - ATYPICAL MYCOBACTERIAL INFECTION [None]
  - DEVICE RELATED SEPSIS [None]
  - GASTROINTESTINAL INFECTION [None]
  - STAPHYLOCOCCAL INFECTION [None]
